FAERS Safety Report 9402787 (Version 2)
Quarter: 2013Q3

REPORT INFORMATION
  Report Type: Spontaneous
  Country: BR (occurrence: BR)
  Receive Date: 20130716
  Receipt Date: 20130820
  Transmission Date: 20140515
  Serious: Yes (Hospitalization)
  Sender: FDA-Public Use
  Company Number: BR-ASTRAZENECA-2013SE51604

PATIENT
  Age: 32 Month
  Sex: Male
  Weight: 3.9 kg

DRUGS (1)
  1. LOSEC MUPS [Suspect]
     Indication: GASTROOESOPHAGEAL REFLUX DISEASE
     Route: 048
     Dates: start: 20130502, end: 201306

REACTIONS (3)
  - Food aversion [Recovered/Resolved]
  - Crying [Recovered/Resolved]
  - Intentional drug misuse [Recovered/Resolved]
